FAERS Safety Report 9552696 (Version 1)
Quarter: 2013Q1

REPORT INFORMATION
  Report Type: Spontaneous
  Country: US (occurrence: None)
  Receive Date: 20130318
  Receipt Date: 20130318
  Transmission Date: 20140127
  Serious: Yes (Other)
  Sender: FDA-Public Use
  Company Number: 078657

PATIENT
  Sex: Male
  Weight: 81.6 kg

DRUGS (1)
  1. ROTIGOTINE [Suspect]
     Indication: PARKINSON^S DISEASE
     Route: 062
     Dates: start: 2013, end: 2013

REACTIONS (2)
  - Nightmare [None]
  - Narcolepsy [None]
